FAERS Safety Report 18636297 (Version 1)
Quarter: 2020Q4

REPORT INFORMATION
  Report Type: Spontaneous
  Country: US (occurrence: US)
  Receive Date: 20201218
  Receipt Date: 20201218
  Transmission Date: 20210114
  Serious: No
  Sender: FDA-Public Use
  Company Number: US-ASTRAZENECA-2020SF62262

PATIENT
  Sex: Male
  Weight: 86.2 kg

DRUGS (3)
  1. PULMICORT FLEXHALER [Suspect]
     Active Substance: BUDESONIDE
     Indication: ASTHMA
     Dosage: 90UG/INHAL TWO TIMES A DAY
     Route: 055
  2. PULMICORT FLEXHALER [Suspect]
     Active Substance: BUDESONIDE
     Indication: ASTHMA
     Dosage: 90UG/INHAL TWO TIMES A DAY
     Route: 055
     Dates: start: 2011
  3. ALBUTEROL. [Concomitant]
     Active Substance: ALBUTEROL
     Indication: PROPHYLAXIS
     Dosage: AS REQUIRED

REACTIONS (5)
  - Product residue present [Unknown]
  - Drug delivery system issue [Unknown]
  - Device colour issue [Unknown]
  - Intentional device misuse [Unknown]
  - Wrong technique in device usage process [Unknown]
